FAERS Safety Report 5594808-7 (Version None)
Quarter: 2008Q1

REPORT INFORMATION
  Report Type: 
  Country: None (occurrence: None)
  Receive Date: 20080117
  Receipt Date: 20080110
  Transmission Date: 20080703
  Serious: Yes (Hospitalization)
  Sender: FDA-Public Use
  Company Number: B0502652A

PATIENT
  Age: 2 Year
  Sex: Female
  Weight: 10 kg

DRUGS (1)
  1. LAMICTAL [Suspect]
     Indication: ACCIDENTAL EXPOSURE
     Dosage: 1TAB SINGLE DOSE
     Route: 048
     Dates: start: 20071122, end: 20071122

REACTIONS (5)
  - ACCIDENTAL EXPOSURE [None]
  - FEELING DRUNK [None]
  - HYPOTONIA [None]
  - PALLOR [None]
  - SOMNOLENCE [None]
